FAERS Safety Report 8519807-4 (Version None)
Quarter: 2012Q3

REPORT INFORMATION
  Report Type: 
  Country: None (occurrence: None)
  Receive Date: 20120719
  Receipt Date: 20120710
  Transmission Date: 20120928
  Serious: No
  Sender: FDA-Public Use
  Company Number: US-BIOGENIDEC-2012BI024707

PATIENT
  Sex: Female

DRUGS (2)
  1. TYSABRI [Suspect]
     Indication: MULTIPLE SCLEROSIS
     Route: 042
     Dates: start: 20090126, end: 20100902
  2. TYSABRI [Suspect]
     Route: 042
     Dates: start: 20110719

REACTIONS (4)
  - FEAR [None]
  - GENERAL SYMPTOM [None]
  - DEPRESSED MOOD [None]
  - HYPERSOMNIA [None]
